FAERS Safety Report 6287267-2 (Version None)
Quarter: 2009Q3

REPORT INFORMATION
  Report Type: 
  Country: None (occurrence: None)
  Receive Date: 20090728
  Receipt Date: 20090716
  Transmission Date: 20100115
  Serious: Yes (Hospitalization)
  Sender: FDA-Public Use
  Company Number: PHHY2009IE17768

PATIENT
  Sex: Male

DRUGS (9)
  1. CLOZARIL [Suspect]
     Indication: SCHIZOPHRENIA
     Dosage: 175 MG, DAILY
     Route: 048
     Dates: start: 20090420, end: 20090506
  2. PRIADEL [Concomitant]
     Dosage: 1200 MG NOCTE
  3. ZUCLOPENTHIXOL [Concomitant]
     Dosage: 40 MG, BID
  4. OLANZAPINE [Concomitant]
     Dosage: 15 MG NOCTE
  5. ZOLPIDEM [Concomitant]
     Dosage: 10 MG NOCTE
  6. ASPIRIN [Concomitant]
     Dosage: 75 MG, QD
  7. LIPITOR [Concomitant]
     Dosage: 10 MG, BID
  8. PLAVIX [Concomitant]
     Dosage: 75 MG, QD
  9. EMCOR [Concomitant]
     Dosage: 2.5 MG, QD

REACTIONS (5)
  - CHEST PAIN [None]
  - COUGH [None]
  - LOWER RESPIRATORY TRACT INFECTION [None]
  - MYOCARDIAL INFARCTION [None]
  - MYOCARDITIS [None]
